FAERS Safety Report 7054242-X (Version None)
Quarter: 2010Q4

REPORT INFORMATION
  Report Type: 
  Country: None (occurrence: None)
  Receive Date: 20101014
  Receipt Date: 20100930
  Transmission Date: 20110411
  Serious: Yes (Hospitalization)
  Sender: FDA-Public Use
  Company Number: AT-003514

PATIENT
  Sex: Male

DRUGS (12)
  1. FIRMAGON [Suspect]
     Indication: PROSTATE CANCER
     Dosage: 240 MG 1X SUBCUTANEOUS, 80 MG 1X/MONTH SUBCUTANEOUS
     Route: 058
     Dates: start: 20100101
  2. FIRMAGON [Suspect]
  3. TRENANTONE [Concomitant]
  4. BICALUTAMIDA [Concomitant]
  5. NEBIVOLOL [Concomitant]
  6. SIMVASTATIN [Concomitant]
  7. CITALOPRAM HYDROBROMIDE [Concomitant]
  8. PROTHIPENDYL [Concomitant]
  9. BROMAZEPAM [Concomitant]
  10. FENTANYL [Concomitant]
  11. HYDROMORPHONE HCL [Concomitant]
  12. BISPHOSPHONATES [Concomitant]

REACTIONS (5)
  - ANAPHYLACTIC SHOCK [None]
  - HEART RATE INCREASED [None]
  - IMMEDIATE POST-INJECTION REACTION [None]
  - METASTASES TO BONE [None]
  - URTICARIA [None]
